FAERS Safety Report 5888821-X (Version None)
Quarter: 2008Q3

REPORT INFORMATION
  Report Type: 
  Country: None (occurrence: None)
  Receive Date: 20080919
  Receipt Date: 20080909
  Transmission Date: 20090109
  Serious: Yes (Other)
  Sender: FDA-Public Use
  Company Number: CH-JNJFOC-20080902103

PATIENT
  Age: 34 Year
  Sex: Female

DRUGS (6)
  1. REMICADE [Suspect]
     Dosage: 3 DOSES ON UNKNOWN DATES
     Route: 042
  2. REMICADE [Suspect]
     Indication: PSORIATIC ARTHROPATHY
     Dosage: 3 DOSES ON UNKNOWN DATES
     Route: 042
  3. METHOTREXATE [Concomitant]
     Indication: PSORIATIC ARTHROPATHY
     Route: 048
  4. ENBREL [Concomitant]
     Indication: PSORIATIC ARTHROPATHY
     Route: 058
  5. FOLIC ACID [Concomitant]
  6. VOLTAREN [Concomitant]

REACTIONS (2)
  - ASTHMATIC CRISIS [None]
  - INFUSION RELATED REACTION [None]
